FAERS Safety Report 9247881 (Version 7)
Quarter: 2013Q3

REPORT INFORMATION
  Report Type: Report from Study
  Country: US (occurrence: US)
  Receive Date: 20130423
  Receipt Date: 20130813
  Transmission Date: 20140515
  Serious: Yes (Hospitalization)
  Sender: FDA-Public Use
  Company Number: US-BRISTOL-MYERS SQUIBB COMPANY-18809483

PATIENT
  Age: 27 Year
  Sex: Male

DRUGS (1)
  1. ARIPIPRAZOLE IM DEPOT [Suspect]
     Indication: SCHIZOPHRENIA
     Dosage: LAST DOSE OF ARIPIPRAZOLE 400 MG IM DEPOT.
     Route: 030
     Dates: start: 20130213, end: 20130314

REACTIONS (1)
  - Schizophrenia, paranoid type [Recovered/Resolved]
